FAERS Safety Report 9562363 (Version 1)
Quarter: 2013Q3

REPORT INFORMATION
  Report Type: Spontaneous
  Country: US (occurrence: None)
  Receive Date: 20130926
  Receipt Date: 20130926
  Transmission Date: 20140515
  Serious: No
  Sender: FDA-Public Use
  Company Number: None

PATIENT
  Age: 69 Year
  Sex: Female

DRUGS (1)
  1. ACTHAR [Suspect]
     Dosage: 1ML TWICE WEEKLY, IM.
     Route: 030

REACTIONS (2)
  - Incorrect dose administered [None]
  - Underdose [None]
